FAERS Safety Report 15429177 (Version 1)
Quarter: 2018Q3

REPORT INFORMATION
  Report Type: Spontaneous
  Country: US (occurrence: US)
  Receive Date: 20180926
  Receipt Date: 20180926
  Transmission Date: 20181010
  Serious: No
  Sender: FDA-Public Use
  Company Number: US-PFIZER INC-2018387005

PATIENT
  Age: 56 Year
  Sex: Female

DRUGS (1)
  1. AZITHROMYCIN ANHYDROUS. [Suspect]
     Active Substance: AZITHROMYCIN ANHYDROUS
     Indication: SINUSITIS
     Dosage: 500 MG TWO TABLETS ON THE FIRST DAY AND 250 MG FOR FOUR CONSECUTIVE DAYS BY MOUTH
     Route: 048

REACTIONS (2)
  - Dyspnoea [Unknown]
  - Heart rate abnormal [Unknown]
